FAERS Safety Report 8910952 (Version 1)
Quarter: 2012Q4

REPORT INFORMATION
  Report Type: 
  Country: DE (occurrence: DE)
  Receive Date: 20121116
  Receipt Date: 20121116
  Transmission Date: 20130627
  Serious: Yes (Hospitalization)
  Sender: FDA-Public Use
  Company Number: DE-ELI_LILLY_AND_COMPANY-DE201211002654

PATIENT
  Age: 79 Year
  Sex: Female

DRUGS (5)
  1. FORSTEO [Suspect]
     Indication: OSTEOPOROSIS
     Dosage: UNK, qd
     Route: 058
     Dates: start: 20110505
  2. MORPHINE [Concomitant]
  3. CALCIUM [Concomitant]
  4. VITAMIN D NOS [Concomitant]
  5. FINALGON                           /01284101/ [Concomitant]
     Dosage: UNK, prn

REACTIONS (4)
  - Varicose vein [Recovered/Resolved]
  - Hand fracture [Recovered/Resolved]
  - Bone disorder [Not Recovered/Not Resolved]
  - Fall [Recovered/Resolved]
